FAERS Safety Report 9839349 (Version 1)
Quarter: 2014Q1

REPORT INFORMATION
  Report Type: Spontaneous
  Country: US (occurrence: US)
  Receive Date: 20140123
  Receipt Date: 20140123
  Transmission Date: 20141002
  Serious: Yes (Hospitalization, Disabling)
  Sender: FDA-Public Use
  Company Number: US-GE HEALTHCARE MEDICAL DIAGNOSTICS-OSCN-PR-1312S-0154

PATIENT
  Age: 50 Year
  Sex: Male

DRUGS (7)
  1. OMNISCAN [Suspect]
     Indication: PROTEINURIA
     Route: 042
     Dates: start: 19990612, end: 19990612
  2. OMNISCAN [Suspect]
     Indication: GENERALISED OEDEMA
     Route: 042
     Dates: start: 19990613, end: 19990613
  3. OMNISCAN [Suspect]
     Indication: RENAL FAILURE ACUTE
     Route: 042
     Dates: start: 19990615, end: 19990615
  4. MAGNEVIST [Suspect]
     Indication: LICHEN MYXOEDEMATOSUS
     Dates: start: 20010226, end: 20010226
  5. MAGNEVIST [Suspect]
     Indication: MUSCLE ATROPHY
  6. MAGNEVIST [Suspect]
     Indication: SKIN HYPERTROPHY
  7. MAGNEVIST [Suspect]
     Indication: PAIN IN EXTREMITY

REACTIONS (1)
  - Nephrogenic systemic fibrosis [Not Recovered/Not Resolved]
